FAERS Safety Report 5825852-X (Version None)
Quarter: 2008Q3

REPORT INFORMATION
  Report Type: 
  Country: None (occurrence: None)
  Receive Date: 20080729
  Receipt Date: 20080718
  Transmission Date: 20090109
  Serious: Yes (Hospitalization)
  Sender: FDA-Public Use
  Company Number: TW-BRISTOL-MYERS SQUIBB COMPANY-14237259

PATIENT
  Age: 23 Year
  Sex: Female

DRUGS (2)
  1. ABILIFY [Suspect]
     Indication: SCHIZOPHRENIA
     Dosage: 12APR07-MAY08 16JUN08-18JUN08,10MG,PO 19JUN08-30JUN08,15MG/D,PO,12DAYS.
     Route: 048
     Dates: start: 20070412, end: 20080630
  2. CLONAZEPAM [Concomitant]
     Dosage: DOSAGE FORM - TABLET
     Dates: start: 20080616, end: 20080618

REACTIONS (2)
  - BLOOD UREA INCREASED [None]
  - SCHIZOPHRENIA [None]
